FAERS Safety Report 5736868-6 (Version None)
Quarter: 2008Q2

REPORT INFORMATION
  Report Type: 
  Country: None (occurrence: None)
  Receive Date: 20080508
  Receipt Date: 20080423
  Transmission Date: 20081010
  Serious: Yes (Other)
  Sender: FDA-Public Use
  Company Number: DSU-2008-00622

PATIENT
  Age: 66 Year
  Sex: Female
  Weight: 46 kg

DRUGS (6)
  1. OLMESARTAN MEDOXOMIL [Suspect]
     Indication: CARDIOMEGALY
     Dosage: 40 MG (40 MG, QD), PER ORAL
     Route: 048
     Dates: start: 20080219
  2. SPIRONOLACTONE [Concomitant]
  3. ACETYLSALICYLIC ACID SRT [Concomitant]
  4. DIGOXIN [Concomitant]
  5. FUROSEMIDE [Concomitant]
     Dosage: 40MG      QD
     Route: 048
  6. DIAZEPAM [Concomitant]
     Indication: NERVOUSNESS
     Route: 048

REACTIONS (13)
  - ANOREXIA [None]
  - BONE PAIN [None]
  - COUGH [None]
  - DECREASED INTEREST [None]
  - DIARRHOEA [None]
  - MUSCLE SPASMS [None]
  - NAUSEA [None]
  - ORAL INTAKE REDUCED [None]
  - PAIN [None]
  - SLEEP DISORDER [None]
  - SOMNOLENCE [None]
  - STOMACH DISCOMFORT [None]
  - SYNCOPE [None]
